FAERS Safety Report 5091219-8 (Version None)
Quarter: 2006Q3

REPORT INFORMATION
  Report Type: 
  Country: None (occurrence: None)
  Receive Date: 20060825
  Receipt Date: 20060825
  Transmission Date: 20061208
  Serious: Yes (Other)
  Sender: FDA-Public Use
  Company Number: None

PATIENT
  Age: 63 Year
  Sex: Female
  Weight: 127.0072 kg

DRUGS (2)
  1. SULFACETAMIDE 10% FOUGERA [Suspect]
     Indication: EYE SWELLING
     Dosage: 1/4^ RIBBON 3 TIMES/DAY OPHTHALMIC
     Route: 047
     Dates: start: 20050330, end: 20050420
  2. SULFACETAMIDE 10% FOUGERA [Suspect]
     Indication: OCULAR HYPERAEMIA
     Dosage: 1/4^ RIBBON 3 TIMES/DAY OPHTHALMIC
     Route: 047
     Dates: start: 20050330, end: 20050420

REACTIONS (3)
  - ADVERSE DRUG REACTION [None]
  - CONDITION AGGRAVATED [None]
  - HERPES ZOSTER OPHTHALMIC [None]
